FAERS Safety Report 4781695-X (Version None)
Quarter: 2005Q3

REPORT INFORMATION
  Report Type: 
  Country: None (occurrence: None)
  Receive Date: 20050927
  Receipt Date: 20050913
  Transmission Date: 20060218
  Serious: Yes (Other)
  Sender: FDA-Public Use
  Company Number: DSA_27089_2005

PATIENT
  Age: 76 Year
  Sex: Female
  Weight: 65 kg

DRUGS (2)
  1. LORAX [Suspect]
     Indication: INSOMNIA
     Dosage: 2 MG BID PO
     Route: 048
     Dates: start: 19850101
  2. NATRILIX [Concomitant]

REACTIONS (11)
  - BLOOD PRESSURE INCREASED [None]
  - CARDIAC DISORDER [None]
  - DRY MOUTH [None]
  - FACE OEDEMA [None]
  - HOT FLUSH [None]
  - HYPERSENSITIVITY [None]
  - HYPOAESTHESIA [None]
  - INSOMNIA [None]
  - MALAISE [None]
  - OEDEMA [None]
  - TREMOR [None]
